FAERS Safety Report 19177502 (Version 1)
Quarter: 2021Q2

REPORT INFORMATION
  Report Type: Report from Study
  Country: None (occurrence: US)
  Receive Date: 20210425
  Receipt Date: 20210425
  Transmission Date: 20210717
  Serious: Yes (Other)
  Sender: FDA-Public Use
  Company Number: US-ABBVIE-21K-163-3797374-00

PATIENT
  Age: 78 Year
  Sex: Female
  Weight: 81.27 kg

DRUGS (10)
  1. METHOTREXATE. [Concomitant]
     Active Substance: METHOTREXATE
     Indication: FIBROMYALGIA
  2. TRESIBA [Concomitant]
     Active Substance: INSULIN DEGLUDEC
     Indication: DIABETES MELLITUS
  3. COVID?19 VACCINE NOS. [Concomitant]
     Active Substance: COVID-19 VACCINE NOS
     Indication: COVID-19 IMMUNISATION
     Dosage: MODERNA
     Route: 030
     Dates: start: 20210215, end: 20210215
  4. HUMIRA [Suspect]
     Active Substance: ADALIMUMAB
     Route: 058
     Dates: start: 20210106
  5. IBUPROFEN. [Concomitant]
     Active Substance: IBUPROFEN
     Indication: PRODUCT USED FOR UNKNOWN INDICATION
  6. LEVOTHYROXINE. [Concomitant]
     Active Substance: LEVOTHYROXINE
     Indication: HYPOTHYROIDISM
  7. COVID?19 VACCINE NOS. [Concomitant]
     Active Substance: COVID-19 VACCINE NOS
     Dosage: MODERNA
     Route: 030
     Dates: start: 20210315, end: 20210315
  8. GABAPENTIN. [Concomitant]
     Active Substance: GABAPENTIN
     Indication: PRODUCT USED FOR UNKNOWN INDICATION
  9. HUMIRA [Suspect]
     Active Substance: ADALIMUMAB
     Indication: RHEUMATOID ARTHRITIS
     Route: 058
     Dates: start: 202001, end: 202008
  10. NOVOLOG [Concomitant]
     Active Substance: INSULIN ASPART
     Indication: DIABETES MELLITUS

REACTIONS (8)
  - Joint swelling [Recovering/Resolving]
  - Hypoaesthesia [Not Recovered/Not Resolved]
  - Paraesthesia [Not Recovered/Not Resolved]
  - Pain [Not Recovered/Not Resolved]
  - Post procedural complication [Not Recovered/Not Resolved]
  - Knee arthroplasty [Unknown]
  - Arthralgia [Recovering/Resolving]
  - Peripheral vascular disorder [Not Recovered/Not Resolved]

NARRATIVE: CASE EVENT DATE: 2020
